FAERS Safety Report 8477604 (Version 2)
Quarter: 2013Q4

REPORT INFORMATION
  Report Type: Spontaneous
  Country: FR (occurrence: None)
  Receive Date: 20120319
  Receipt Date: 20131017
  Transmission Date: 20140711
  Serious: Yes (Hospitalization)
  Sender: FDA-Public Use
  Company Number: ENTC2012-0093

PATIENT
  Age: 60 Year
  Sex: Male

DRUGS (5)
  1. STALEVO [Suspect]
     Indication: PARKINSON^S DISEASE
     Dosage: 1 DF (750/187.5/1000 MG) DAILY ORAL
     Route: 048
     Dates: start: 2010
  2. AZILECT [Suspect]
     Indication: PARKINSON^S DISEASE
     Dosage: 1 MG QD, ORAL
     Route: 048
     Dates: start: 20111121, end: 20120122
  3. DOXAZOSIN MESYLATE [Concomitant]
  4. ALDACTONE [Concomitant]
  5. RIVOTRIL [Concomitant]

REACTIONS (11)
  - Arthralgia [None]
  - Pyrexia [None]
  - General physical health deterioration [None]
  - Dehydration [None]
  - Dyskinesia [None]
  - Vertigo [None]
  - Obsessive-compulsive disorder [None]
  - C-reactive protein increased [None]
  - Conjunctivitis [None]
  - Subileus [None]
  - Psychotic disorder [None]
